FAERS Safety Report 6431305-0 (Version None)
Quarter: 2009Q4

REPORT INFORMATION
  Report Type: 
  Country: None (occurrence: None)
  Receive Date: 20091105
  Receipt Date: 20091105
  Transmission Date: 20100525
  Serious: Yes (Other)
  Sender: FDA-Public Use
  Company Number: None

PATIENT
  Sex: Female
  Weight: 61.6892 kg

DRUGS (4)
  1. BONIVA [Suspect]
     Indication: OSTEOPENIA
     Dosage: 150 ONCE MONTHLY ORAL
     Route: 048
     Dates: start: 20090420
  2. BONIVA [Suspect]
     Indication: OSTEOPENIA
     Dosage: 150 ONCE MONTHLY ORAL
     Route: 048
     Dates: start: 20090520
  3. BONIVA [Suspect]
     Indication: OSTEOPENIA
     Dosage: 150 ONCE MONTHLY ORAL
     Route: 048
     Dates: start: 20090620
  4. BONIVA [Suspect]
     Indication: OSTEOPENIA
     Dosage: 150 ONCE MONTHLY ORAL
     Route: 048
     Dates: start: 20090720

REACTIONS (6)
  - FATIGUE [None]
  - JOINT RANGE OF MOTION DECREASED [None]
  - MUSCULOSKELETAL PAIN [None]
  - PAIN [None]
  - PAIN IN JAW [None]
  - ROTATOR CUFF SYNDROME [None]
